FAERS Safety Report 8003484 (Version 2)
Quarter: 2013Q1

REPORT INFORMATION
  Report Type: Spontaneous
  Country: US (occurrence: US)
  Receive Date: 20110622
  Receipt Date: 20130314
  Transmission Date: 20140127
  Serious: Yes (Death, Disabling)
  Sender: FDA-Public Use
  Company Number: US-MUTUAL PHARMACEUTICAL COMPANY, INC.-MTCA20110084

PATIENT
  Sex: Female

DRUGS (10)
  1. METOCLOPRAMIDE [Suspect]
     Indication: PRODUCT USED FOR UNKNOWN INDICATION
     Route: 048
     Dates: start: 20040926, end: 20050111
  2. METOCLOPRAMIDE [Suspect]
     Route: 048
     Dates: start: 20060331, end: 20061011
  3. METOCLOPRAMIDE [Suspect]
     Route: 048
     Dates: start: 20061026, end: 20070703
  4. METOCLOPRAMIDE [Suspect]
     Route: 048
     Dates: start: 20080328, end: 20081114
  5. METOCLOPRAMIDE [Suspect]
     Route: 048
     Dates: start: 20090505, end: 20090703
  6. REGLAN [Suspect]
     Indication: PRODUCT USED FOR UNKNOWN INDICATION
     Route: 048
     Dates: start: 20040926, end: 20050111
  7. REGLAN [Suspect]
     Route: 048
     Dates: start: 20060331, end: 20061011
  8. REGLAN [Suspect]
     Route: 048
     Dates: start: 20061026, end: 20070703
  9. REGLAN [Suspect]
     Route: 048
     Dates: start: 20080328, end: 20081114
  10. REGLAN [Suspect]
     Route: 048
     Dates: start: 20090505, end: 20090703

REACTIONS (5)
  - Death [None]
  - Extrapyramidal disorder [None]
  - Visual impairment [None]
  - Drug interaction [None]
  - Depression [None]
